FAERS Safety Report 8521212 (Version 3)
Quarter: 2012Q4

REPORT INFORMATION
  Report Type: 
  Country: JP (occurrence: JP)
  Receive Date: 20120419
  Receipt Date: 20121018
  Transmission Date: 20130627
  Serious: Yes (Hospitalization, Other)
  Sender: FDA-Public Use
  Company Number: PHHY2012JP030801

PATIENT
  Age: 66 None
  Sex: Female
  Weight: 46 kg

DRUGS (11)
  1. EXELON PATCH [Suspect]
     Indication: DEMENTIA ALZHEIMER^S TYPE
     Dosage: 4.5 mg, daily
     Route: 062
     Dates: start: 20111215, end: 20111222
  2. EXELON PATCH [Suspect]
     Dosage: 9 mg, daily
     Route: 062
     Dates: start: 20111223, end: 20120111
  3. EXELON PATCH [Suspect]
     Dosage: 13.5 mg, daily
     Route: 062
     Dates: start: 20120112, end: 20120223
  4. EXELON PATCH [Suspect]
     Dosage: 18 mg, daily
     Route: 062
     Dates: start: 20120223, end: 20120403
  5. YOKUKAN-SAN [Suspect]
     Indication: DEMENTIA ALZHEIMER^S TYPE
     Dosage: 5 mg, UNK
     Route: 048
     Dates: start: 20120215, end: 20120321
  6. MEMANTINE HYDROCHLORIDE [Concomitant]
     Indication: DEMENTIA ALZHEIMER^S TYPE
     Dosage: 20 mg, UNK
     Route: 048
  7. GRAMALIL [Concomitant]
     Dosage: 75 mg, UNK
     Route: 048
  8. GASTER [Concomitant]
     Dosage: 20 mg, UNK
     Route: 048
     Dates: start: 201010, end: 20120425
  9. LIPITOR [Concomitant]
     Indication: DYSLIPIDAEMIA
     Dosage: 5 mg, UNK
     Route: 048
     Dates: start: 201010, end: 20120425
  10. MAGMITT KENEI [Concomitant]
     Indication: CONSTIPATION
     Dosage: 660 mg, UNK
     Route: 048
     Dates: start: 20110705, end: 20120425
  11. ADETPHOS [Concomitant]
     Indication: DEMENTIA ALZHEIMER^S TYPE
     Dosage: 120 mg, UNK
     Route: 048
     Dates: start: 20120229, end: 20120425

REACTIONS (11)
  - Loss of consciousness [Recovered/Resolved]
  - Convulsion [Recovered/Resolved]
  - Blood pressure increased [Recovered/Resolved]
  - Blood pressure decreased [Recovering/Resolving]
  - Body temperature increased [Unknown]
  - Crying [Unknown]
  - Dementia Alzheimer^s type [Unknown]
  - Vomiting [Recovered/Resolved]
  - Diarrhoea [Recovered/Resolved]
  - Application site rash [Recovered/Resolved]
  - Application site pruritus [Recovered/Resolved]
